FAERS Safety Report 5373840-2 (Version None)
Quarter: 2007Q2

REPORT INFORMATION
  Report Type: 
  Country: None (occurrence: None)
  Receive Date: 20070628
  Receipt Date: 20070620
  Transmission Date: 20071010
  Serious: Yes (Other)
  Sender: FDA-Public Use
  Company Number: JP-ASTRAZENECA-2007AP03780

PATIENT
  Age: 27947 Day
  Sex: Male

DRUGS (11)
  1. TENORMIN [Suspect]
     Indication: CARDIAC FAILURE
     Route: 048
     Dates: end: 20070610
  2. ASPIRIN [Suspect]
     Route: 048
     Dates: start: 20070427, end: 20070610
  3. BEPRICOR [Suspect]
     Route: 048
     Dates: start: 20070427, end: 20070610
  4. LENDORMIN [Suspect]
     Route: 048
     Dates: end: 20070610
  5. LIPITOR [Suspect]
     Route: 048
     Dates: end: 20070610
  6. PLETAL [Suspect]
     Route: 048
  7. SIGMART [Suspect]
     Route: 048
     Dates: start: 20070427, end: 20070610
  8. WARFARIN POTASSIUM [Suspect]
     Route: 048
     Dates: start: 20070427, end: 20070610
  9. ZANTAC [Suspect]
     Route: 048
     Dates: start: 20070427, end: 20070610
  10. FUROSEMIDE [Concomitant]
  11. AMBROXOL HYDROCHLORIDE [Concomitant]

REACTIONS (5)
  - DYSPNOEA [None]
  - MYELODYSPLASTIC SYNDROME [None]
  - NEUTROPHIL COUNT DECREASED [None]
  - PLEURAL EFFUSION [None]
  - PULMONARY OEDEMA [None]
